FAERS Safety Report 14169929 (Version 2)
Quarter: 2019Q2

REPORT INFORMATION
  Report Type: Report from Study
  Country: US (occurrence: US)
  Receive Date: 20171108
  Receipt Date: 20190411
  Transmission Date: 20190711
  Serious: No
  Sender: FDA-Public Use
  Company Number: US-ROCHE-2022204

PATIENT
  Age: 36 Year
  Sex: Female
  Weight: 85.35 kg

DRUGS (17)
  1. RITUXAN [Suspect]
     Active Substance: RITUXIMAB
     Route: 042
     Dates: start: 201702
  2. TRAMADOL. [Concomitant]
     Active Substance: TRAMADOL
     Route: 048
  3. VITAMIN D3 [Concomitant]
     Active Substance: CHOLECALCIFEROL
     Route: 065
  4. RITUXAN [Suspect]
     Active Substance: RITUXIMAB
     Indication: RELAPSING-REMITTING MULTIPLE SCLEROSIS
     Route: 042
     Dates: start: 2013, end: 2014
  5. ZOFRAN [Concomitant]
     Active Substance: ONDANSETRON HYDROCHLORIDE
     Indication: VOMITING
  6. ZOFRAN [Concomitant]
     Active Substance: ONDANSETRON HYDROCHLORIDE
     Indication: NAUSEA
     Dosage: 1 - 2 TABS EVERY 8 HOURS AS NEEDED DAILY
     Route: 048
  7. YAZ [Concomitant]
     Active Substance: DROSPIRENONE\ETHINYL ESTRADIOL
  8. MYCOPHENOLATE MOFETIL. [Suspect]
     Active Substance: MYCOPHENOLATE MOFETIL
     Indication: MULTIPLE SCLEROSIS
     Route: 065
     Dates: start: 201404
  9. CYTOXAN [Concomitant]
     Active Substance: CYCLOPHOSPHAMIDE
     Indication: RELAPSING-REMITTING MULTIPLE SCLEROSIS
     Route: 042
     Dates: start: 201205, end: 201305
  10. OCREVUS [Suspect]
     Active Substance: OCRELIZUMAB
     Indication: RELAPSING-REMITTING MULTIPLE SCLEROSIS
     Route: 042
     Dates: start: 20171006
  11. TRAMADOL. [Concomitant]
     Active Substance: TRAMADOL
     Indication: RELAPSING-REMITTING MULTIPLE SCLEROSIS
     Dosage: 2 TABS AS NEEDED UP TO SIX A DAY
     Route: 048
  12. LYRICA [Concomitant]
     Active Substance: PREGABALIN
     Indication: RELAPSING-REMITTING MULTIPLE SCLEROSIS
     Dosage: 2 CAPS
     Route: 048
  13. RITUXAN [Suspect]
     Active Substance: RITUXIMAB
     Route: 042
     Dates: start: 20170320
  14. METHYLPHENIDATE HYDROCHLORIDE. [Concomitant]
     Active Substance: METHYLPHENIDATE HYDROCHLORIDE
     Route: 065
  15. RITUXAN [Suspect]
     Active Substance: RITUXIMAB
     Dosage: 10 MH/L SOLUTION
     Route: 042
     Dates: start: 201407, end: 201502
  16. BACLOFEN. [Concomitant]
     Active Substance: BACLOFEN
     Indication: RELAPSING-REMITTING MULTIPLE SCLEROSIS
     Route: 048
  17. LYRICA [Concomitant]
     Active Substance: PREGABALIN
     Route: 048

REACTIONS (7)
  - Paraesthesia [Unknown]
  - Influenza [Unknown]
  - Intentional product use issue [Unknown]
  - Off label use [Unknown]
  - Muscle spasms [Unknown]
  - Sinusitis [Unknown]
  - Back pain [Unknown]

NARRATIVE: CASE EVENT DATE: 20171020
